FAERS Safety Report 10473964 (Version 1)
Quarter: 2014Q3

REPORT INFORMATION
  Report Type: Spontaneous
  Country: US (occurrence: US)
  Receive Date: 20140924
  Receipt Date: 20140924
  Transmission Date: 20150326
  Serious: Yes (Other)
  Sender: FDA-Public Use
  Company Number: US-ACTAVIS-2014-20408

PATIENT
  Age: 7 Year
  Sex: Female

DRUGS (3)
  1. TOPIRAMATE (WATSON LABORATORIES) [Suspect]
     Active Substance: TOPIRAMATE
     Indication: HEADACHE
  2. TOPIRAMATE (WATSON LABORATORIES) [Suspect]
     Active Substance: TOPIRAMATE
     Indication: CONVULSION
     Dosage: 25 MG, QHS
     Route: 065
  3. CYPROHEPATADINE [Concomitant]
     Active Substance: CYPROHEPTADINE HYDROCHLORIDE
     Indication: PRODUCT USED FOR UNKNOWN INDICATION
     Dosage: 5 ML, PRN, QHS
     Route: 065

REACTIONS (3)
  - Angle closure glaucoma [Recovered/Resolved]
  - Myopia [Recovered/Resolved]
  - Off label use [Unknown]
